FAERS Safety Report 7199634-3 (Version None)
Quarter: 2010Q4

REPORT INFORMATION
  Report Type: 
  Country: None (occurrence: None)
  Receive Date: 20101228
  Receipt Date: 20101216
  Transmission Date: 20110411
  Serious: Yes (Hospitalization)
  Sender: FDA-Public Use
  Company Number: IE-SANOFI-AVENTIS-2010SA075865

PATIENT
  Age: 65 Year
  Sex: Female
  Weight: 75 kg

DRUGS (10)
  1. MULTAQ [Suspect]
     Indication: ATRIAL FLUTTER
     Route: 048
     Dates: start: 20101012, end: 20101118
  2. PROTHIADEN /UNK/ [Concomitant]
     Indication: DEPRESSION
  3. TAMBOCOR [Concomitant]
     Dates: start: 20100118, end: 20101118
  4. RABEPRAZOLE SODIUM [Concomitant]
  5. BISOPROLOL [Concomitant]
  6. PRAVASTATIN [Concomitant]
  7. HYDROXYCHLOROQUINE SULFATE [Concomitant]
  8. PERINDOPRIL [Concomitant]
  9. CALCICHEW [Concomitant]
  10. DICLOFENAC SODIUM [Concomitant]
     Indication: BACK PAIN

REACTIONS (1)
  - TACHYCARDIA [None]
